FAERS Safety Report 10209023 (Version 1)
Quarter: 2014Q2

REPORT INFORMATION
  Report Type: Spontaneous
  Country: US (occurrence: US)
  Receive Date: 20140530
  Receipt Date: 20140530
  Transmission Date: 20141212
  Serious: No
  Sender: FDA-Public Use
  Company Number: US-009507513-1405USA009866

PATIENT
  Sex: Female

DRUGS (1)
  1. INVANZ [Suspect]
     Dosage: UNK

REACTIONS (1)
  - Pathogen resistance [Not Recovered/Not Resolved]
